FAERS Safety Report 6218061-6 (Version None)
Quarter: 2009Q2

REPORT INFORMATION
  Report Type: 
  Country: None (occurrence: None)
  Receive Date: 20090608
  Receipt Date: 20090527
  Transmission Date: 20091009
  Serious: Yes (Death)
  Sender: FDA-Public Use
  Company Number: JP-PFIZER INC-2009219941

PATIENT
  Age: 52 Year

DRUGS (2)
  1. HALCION [Suspect]
     Dosage: 2 MG, UNK
  2. SILECE [Suspect]
     Dosage: 0.25 MG, UNK

REACTIONS (1)
  - MULTIPLE DRUG OVERDOSE [None]
